FAERS Safety Report 5847624-2 (Version None)
Quarter: 2008Q3

REPORT INFORMATION
  Report Type: 
  Country: None (occurrence: None)
  Receive Date: 20080818
  Receipt Date: 20080808
  Transmission Date: 20090109
  Serious: Yes (Death, Life-Threatening)
  Sender: FDA-Public Use
  Company Number: FR-JNJFOC-20080700810

PATIENT
  Age: 94 Year
  Sex: Female

DRUGS (11)
  1. TAVANIC [Suspect]
     Indication: LUNG INFECTION
     Route: 048
  2. LOVENOX [Suspect]
     Indication: LOWER LIMB FRACTURE
     Route: 058
  3. LASIX [Suspect]
     Indication: CARDIAC DISORDER
     Route: 048
  4. ROCEPHIN [Suspect]
     Indication: LUNG INFECTION
     Route: 042
  5. ACETYLSALICYLATE LYSINE [Concomitant]
     Indication: LUNG INFECTION
     Route: 042
  6. FUROSEMIDE [Concomitant]
     Indication: LUNG INFECTION
     Route: 042
  7. ATARAX [Concomitant]
     Route: 048
  8. ACETAMINOPHEN [Concomitant]
     Route: 048
  9. RIVOTRIL [Concomitant]
     Route: 048
  10. TOPALGIC [Concomitant]
     Route: 048
  11. MONOCRIXO [Concomitant]
     Route: 048

REACTIONS (2)
  - CARDIAC ARREST [None]
  - FAT EMBOLISM [None]
